FAERS Safety Report 8253008-2 (Version None)
Quarter: 2012Q2

REPORT INFORMATION
  Report Type: 
  Country: None (occurrence: None)
  Receive Date: 20120402
  Receipt Date: 20120322
  Transmission Date: 20120825
  Serious: Yes (Life-Threatening, Hospitalization)
  Sender: FDA-Public Use
  Company Number: JP-MERCK-1112USA01118

PATIENT
  Age: 74 Year
  Sex: Male
  Weight: 62 kg

DRUGS (3)
  1. JANUVIA [Suspect]
     Indication: DIABETES MELLITUS
     Route: 048
     Dates: start: 20100401, end: 20111125
  2. ZOLPIDEM [Suspect]
     Indication: INSOMNIA
     Route: 048
     Dates: start: 20110802, end: 20111125
  3. DIOVAN [Suspect]
     Indication: HYPERTENSION
     Route: 048
     Dates: start: 20110401, end: 20111125

REACTIONS (3)
  - ILEUS [None]
  - POSTOPERATIVE ADHESION [None]
  - BLOOD GLUCOSE INCREASED [None]
